FAERS Safety Report 8512816-0 (Version None)
Quarter: 2012Q3

REPORT INFORMATION
  Report Type: 
  Country: None (occurrence: None)
  Receive Date: 20120716
  Receipt Date: 20120705
  Transmission Date: 20120928
  Serious: Yes (Other)
  Sender: FDA-Public Use
  Company Number: JP-ALEXION-A201201300

PATIENT
  Age: 58 Year
  Sex: Male

DRUGS (2)
  1. NEORAL [Concomitant]
     Dosage: 150 MG, QD
     Dates: start: 20080201
  2. ECULIZUMAB [Suspect]
     Indication: PAROXYSMAL NOCTURNAL HAEMOGLOBINURIA
     Dosage: 900 MG, Q2W
     Route: 042

REACTIONS (4)
  - THROMBOSIS [None]
  - ABDOMINAL PAIN [None]
  - HAEMOLYSIS [None]
  - NEUTROPHIL COUNT DECREASED [None]
